FAERS Safety Report 21253902 (Version 2)
Quarter: 2022Q3

REPORT INFORMATION
  Report Type: Spontaneous
  Country: US (occurrence: US)
  Receive Date: 20220825
  Receipt Date: 20220906
  Transmission Date: 20221026
  Serious: Yes (Hospitalization)
  Sender: FDA-Public Use
  Company Number: US-TEVA-2022-US-2066512

PATIENT
  Age: 19 Year
  Sex: Male

DRUGS (17)
  1. GABAPENTIN [Suspect]
     Active Substance: GABAPENTIN
     Indication: Central pain syndrome
     Route: 065
  2. PREGABALIN [Suspect]
     Active Substance: PREGABALIN
     Indication: Central pain syndrome
     Route: 065
  3. MEXILETINE [Suspect]
     Active Substance: MEXILETINE
     Indication: Central pain syndrome
     Dosage: 150 MILLIGRAM DAILY; THREE TIMES DAILY
     Route: 065
  4. MEXILETINE [Suspect]
     Active Substance: MEXILETINE
     Dosage: UP-TITRATED TO 150MG THREE TIMES DAILY
     Route: 065
  5. MEXILETINE [Suspect]
     Active Substance: MEXILETINE
     Dosage: THREE TIMES DAILY
     Route: 065
  6. METHADONE [Suspect]
     Active Substance: METHADONE HYDROCHLORIDE
     Indication: Central pain syndrome
     Route: 065
  7. LIDOCAINE [Suspect]
     Active Substance: LIDOCAINE
     Indication: Central pain syndrome
     Route: 040
  8. LIDOCAINE [Suspect]
     Active Substance: LIDOCAINE
     Route: 041
  9. LIDOCAINE [Suspect]
     Active Substance: LIDOCAINE
     Route: 041
  10. NORTRIPTYLINE [Concomitant]
     Active Substance: NORTRIPTYLINE
     Indication: Central pain syndrome
     Route: 065
  11. ACETAMINOPHEN [Concomitant]
     Active Substance: ACETAMINOPHEN
     Indication: Central pain syndrome
     Route: 065
  12. ACETAMINOPHEN [Concomitant]
     Active Substance: ACETAMINOPHEN
     Indication: Central pain syndrome
     Dosage: THREE TIMES DAILY
     Route: 065
  13. KETAMINE [Concomitant]
     Active Substance: KETAMINE
     Indication: Central pain syndrome
     Route: 050
  14. HYDROMORPHONE [Concomitant]
     Active Substance: HYDROMORPHONE
     Indication: Central pain syndrome
     Route: 050
  15. HYDROMORPHONE [Concomitant]
     Active Substance: HYDROMORPHONE
     Dosage: AS NEEDED
     Route: 050
  16. PREDNISONE [Concomitant]
     Active Substance: PREDNISONE
     Indication: Sickle cell anaemia with crisis
     Dosage: TAPERED DOSE
     Route: 065
  17. IBUPROFEN [Concomitant]
     Active Substance: IBUPROFEN
     Indication: Central pain syndrome
     Dosage: THREE TIMES DAILY
     Route: 065

REACTIONS (5)
  - Hyperaesthesia [Recovering/Resolving]
  - Dizziness [Unknown]
  - Vision blurred [Unknown]
  - Headache [Unknown]
  - Therapy non-responder [Unknown]
